FAERS Safety Report 9218502 (Version 2)
Quarter: 2013Q2

REPORT INFORMATION
  Report Type: Spontaneous
  Country: US (occurrence: US)
  Receive Date: 20130409
  Receipt Date: 20130603
  Transmission Date: 20140414
  Serious: Yes (Other)
  Sender: FDA-Public Use
  Company Number: US-PFIZER INC-2013109634

PATIENT
  Age: 66 Year
  Sex: Male
  Weight: 81.19 kg

DRUGS (13)
  1. IBUPROFEN [Suspect]
     Dosage: UNK
  2. RIVAROXABAN [Suspect]
     Indication: CEREBROVASCULAR ACCIDENT PROPHYLAXIS
     Dosage: 20 MG, UNK
     Route: 048
     Dates: start: 20130207, end: 20130325
  3. RIVAROXABAN [Suspect]
     Indication: ATRIAL FIBRILLATION
     Dosage: 15 MG, UNK
     Route: 048
     Dates: start: 20130325
  4. RIVAROXABAN [Suspect]
     Dosage: 20 MG, UNK
  5. ACETYLSALICYLIC ACID [Suspect]
     Dosage: 81 MG, 2X/DAY
     Route: 048
  6. AMIODARONE HYDROCHLORIDE [Concomitant]
     Route: 048
     Dates: start: 20130207
  7. ATORVASTATIN CALCIUM [Concomitant]
     Route: 048
     Dates: start: 20120912
  8. CARVEDILOL [Concomitant]
     Route: 048
     Dates: start: 20120910
  9. DILTIAZEM HYDROCHLORIDE [Concomitant]
     Dosage: 180 MG, 1X/DAY
     Route: 048
     Dates: start: 20130320
  10. FISH OIL [Concomitant]
     Route: 048
     Dates: start: 20130115
  11. METFORMIN HYDROCHLORIDE [Concomitant]
     Dosage: 500 MG, 2X/DAY
     Route: 048
  12. NITROSTAT [Concomitant]
     Indication: CHEST PAIN
     Dosage: 1 TABLET UNDER THE TONGUE EVERY 5 MINUTES UPTO 3 DOSES AS NEEDED.
     Route: 060
     Dates: start: 20120906
  13. DIGOXIN [Concomitant]
     Route: 048

REACTIONS (2)
  - Vascular pseudoaneurysm [Recovered/Resolved]
  - Gingival bleeding [Not Recovered/Not Resolved]
